FAERS Safety Report 25620927 (Version 1)
Quarter: 2025Q3

REPORT INFORMATION
  Report Type: Spontaneous
  Country: US (occurrence: US)
  Receive Date: 20250730
  Receipt Date: 20250730
  Transmission Date: 20251020
  Serious: No
  Sender: AMNEAL
  Company Number: US-AMNEAL-2024-AMRX-02662

PATIENT
  Age: 38 Year
  Sex: Male

DRUGS (2)
  1. BACLOFEN [Suspect]
     Active Substance: BACLOFEN
     Indication: Product used for unknown indication
     Dosage: 449 MILLIGRAM (2000 MG/ML), QD
     Route: 065
  2. BACLOFEN [Suspect]
     Active Substance: BACLOFEN
     Dosage: (2000 MG/ML) 498 MICROGRAM PER DAY
     Route: 037

REACTIONS (3)
  - Muscle spasticity [Unknown]
  - Device malfunction [Unknown]
  - Device computer issue [Unknown]

NARRATIVE: CASE EVENT DATE: 20240718
